FAERS Safety Report 15322722 (Version 2)
Quarter: 2019Q3

REPORT INFORMATION
  Report Type: Report from Study
  Country: US (occurrence: US)
  Receive Date: 20180827
  Receipt Date: 20190815
  Transmission Date: 20191004
  Serious: No
  Sender: FDA-Public Use
  Company Number: US-AMGEN-USASL2018116765

PATIENT
  Age: 55 Year
  Sex: Female

DRUGS (2)
  1. ENBREL [Suspect]
     Active Substance: ETANERCEPT
     Indication: PSORIASIS
     Dosage: 50 MILLIGRAM, QWK
     Route: 065
     Dates: start: 201709, end: 2018
  2. ENBREL [Suspect]
     Active Substance: ETANERCEPT
     Indication: PSORIATIC ARTHROPATHY
     Dosage: UNK
     Route: 065
     Dates: start: 201806

REACTIONS (10)
  - Weight increased [Unknown]
  - Ingrowing nail [Unknown]
  - Psoriasis [Recovering/Resolving]
  - Therapeutic product effect decreased [Unknown]
  - Nail operation [Unknown]
  - Injection site pain [Unknown]
  - Injection site pruritus [Unknown]
  - Fatigue [Unknown]
  - Paronychia [Unknown]
  - Injection site erythema [Unknown]

NARRATIVE: CASE EVENT DATE: 201806
